FAERS Safety Report 5690416-8 (Version None)
Quarter: 2008Q1

REPORT INFORMATION
  Report Type: 
  Country: None (occurrence: None)
  Receive Date: 20080331
  Receipt Date: 20080331
  Transmission Date: 20080703
  Serious: Yes (Other)
  Sender: FDA-Public Use
  Company Number: None

PATIENT
  Sex: Female
  Weight: 74.8435 kg

DRUGS (1)
  1. EMEND DON'T KNOW [Suspect]
     Indication: PROPHYLAXIS OF NAUSEA AND VOMITING
     Dosage: CHEMOTHERAPY REGIMEN PO
     Route: 048
     Dates: start: 20080327, end: 20080329

REACTIONS (6)
  - ABDOMINAL PAIN [None]
  - BRADYCARDIA [None]
  - DIARRHOEA [None]
  - FLATULENCE [None]
  - HAEMATOCHEZIA [None]
  - HYPOTENSION [None]
